FAERS Safety Report 5153724-5 (Version None)
Quarter: 2006Q4

REPORT INFORMATION
  Report Type: 
  Country: None (occurrence: None)
  Receive Date: 20061120
  Receipt Date: 20061113
  Transmission Date: 20070319
  Serious: Yes (Hospitalization)
  Sender: FDA-Public Use
  Company Number: US-RB-004346-06

PATIENT
  Sex: Female

DRUGS (1)
  1. SUBOXONE [Suspect]
     Indication: DRUG DEPENDENCE
     Dosage: 8 MG TAKEN FOR FIRST DOSE, EXPERIENCED WITHDRAWAL, MD TOLD PATIENT TO TAKE 2 MORE 8 MG TABLETS.
     Route: 060

REACTIONS (2)
  - ARRHYTHMIA [None]
  - DRUG WITHDRAWAL SYNDROME [None]
